FAERS Safety Report 4838936-X (Version None)
Quarter: 2005Q4

REPORT INFORMATION
  Report Type: 
  Country: None (occurrence: None)
  Receive Date: 20051122
  Receipt Date: 20051122
  Transmission Date: 20060501
  Serious: No
  Sender: FDA-Public Use
  Company Number: None

PATIENT

DRUGS (1)
  1. ROCURONIUM  10 MG/ML  5 MLS VIALS ORGANON [Suspect]
     Dates: start: 20051101, end: 20051121

REACTIONS (3)
  - DELAYED RECOVERY FROM ANAESTHESIA [None]
  - PARALYSIS [None]
  - PHARMACEUTICAL PRODUCT COMPLAINT [None]
